FAERS Safety Report 5199229-7 (Version None)
Quarter: 2007Q1

REPORT INFORMATION
  Report Type: 
  Country: None (occurrence: None)
  Receive Date: 20070104
  Receipt Date: 20061206
  Transmission Date: 20070707
  Serious: Yes (Congenital Anomaly)
  Sender: FDA-Public Use
  Company Number: FR-PFIZER INC-2006154166

PATIENT
  Sex: Female

DRUGS (10)
  1. VIRACEPT [Suspect]
     Indication: HIV INFECTION
     Dosage: DAILY DOSE:250MG
     Route: 064
  2. COMBIVIR [Suspect]
     Indication: HIV INFECTION
     Route: 064
  3. RETROVIR [Suspect]
     Indication: HIV INFECTION
     Route: 064
  4. RETROVIR [Suspect]
     Route: 064
     Dates: start: 20000908, end: 20000908
  5. VIDEX [Suspect]
     Indication: HIV INFECTION
     Route: 064
  6. ZERIT [Suspect]
     Indication: HIV INFECTION
     Route: 064
  7. VIRAMUNE [Suspect]
  8. SUSTIVA [Suspect]
  9. VENTOLIN [Concomitant]
  10. SPASFON [Concomitant]

REACTIONS (9)
  - CAESAREAN SECTION [None]
  - CONGENITAL ANOMALY [None]
  - DEVELOPMENTAL DELAY [None]
  - DRUG EXPOSURE DURING PREGNANCY [None]
  - HYPERTRIGLYCERIDAEMIA [None]
  - LYMPHOPENIA [None]
  - NEUTROPENIA [None]
  - PREMATURE LABOUR [None]
  - VASCULAR MALFORMATION PERIPHERAL [None]
